FAERS Safety Report 20394628 (Version 1)
Quarter: 2022Q1

REPORT INFORMATION
  Report Type: Spontaneous
  Country: JP (occurrence: JP)
  Receive Date: 20220129
  Receipt Date: 20220129
  Transmission Date: 20220423
  Serious: Yes (Other)
  Sender: FDA-Public Use
  Company Number: JP-SA-2022SA020381

PATIENT
  Age: 69 Year
  Sex: Male

DRUGS (2)
  1. AFLIBERCEPT [Suspect]
     Active Substance: AFLIBERCEPT
     Indication: Rectal cancer
     Dosage: UNK
  2. BEVACIZUMAB [Suspect]
     Active Substance: BEVACIZUMAB
     Indication: Rectal cancer
     Dosage: UNK

REACTIONS (5)
  - Microangiopathy [Unknown]
  - Oedema peripheral [Unknown]
  - Blood pressure increased [Unknown]
  - Kidney fibrosis [Unknown]
  - Renal tubular atrophy [Unknown]
